FAERS Safety Report 4951792-4 (Version None)
Quarter: 2006Q1

REPORT INFORMATION
  Report Type: 
  Country: None (occurrence: None)
  Receive Date: 20060322
  Receipt Date: 20060322
  Transmission Date: 20060701
  Serious: No
  Sender: FDA-Public Use
  Company Number: None

PATIENT
  Age: 53 Year
  Sex: Female

DRUGS (10)
  1. AMIODARONE HCL [Suspect]
     Indication: VENTRICULAR TACHYCARDIA
     Dosage: 300 MG ONCE IV BOLUS
     Route: 040
     Dates: start: 20051104, end: 20051104
  2. HEPARIN [Suspect]
     Indication: ACUTE CORONARY SYNDROME
     Dosage: 5000 UNITS Q8 H SQ
     Route: 058
     Dates: start: 20051103, end: 20051125
  3. HEPARIN [Suspect]
     Indication: THROMBOSIS PROPHYLAXIS
     Dosage: 5000 UNITS Q8 H SQ
     Route: 058
     Dates: start: 20051103, end: 20051125
  4. COLACE [Concomitant]
  5. PREVACID [Concomitant]
  6. LEVAQUIN [Concomitant]
  7. ASPIRIN [Concomitant]
  8. PLAVIX [Concomitant]
  9. ZOCOR [Concomitant]
  10. INSULIN R SLIDING SCALE [Concomitant]

REACTIONS (2)
  - HYPERKALAEMIA [None]
  - VENTRICULAR TACHYCARDIA [None]
